FAERS Safety Report 5987955-9 (Version None)
Quarter: 2008Q4

REPORT INFORMATION
  Report Type: 
  Country: None (occurrence: None)
  Receive Date: 20081210
  Receipt Date: 20080416
  Transmission Date: 20090506
  Serious: No
  Sender: FDA-Public Use
  Company Number: US-AMGEN-KDL274536

PATIENT
  Sex: Female

DRUGS (3)
  1. ENBREL [Suspect]
     Indication: RHEUMATOID ARTHRITIS
     Route: 058
     Dates: start: 20080114
  2. METHOTREXATE [Concomitant]
     Dates: start: 20070101
  3. SULFASALAZINE [Concomitant]
     Dates: start: 20070801

REACTIONS (1)
  - INJECTION SITE HAEMATOMA [None]
